FAERS Safety Report 15433690 (Version 1)
Quarter: 2018Q3

REPORT INFORMATION
  Report Type: Spontaneous
  Country: US (occurrence: US)
  Receive Date: 20180921
  Receipt Date: 20180921
  Transmission Date: 20181010
  Serious: Yes (Hospitalization)
  Sender: FDA-Public Use
  Company Number: None

PATIENT
  Age: 66 Year
  Weight: 62.2 kg

DRUGS (1)
  1. YESCARTA [Suspect]
     Active Substance: AXICABTAGENE CILOLEUCEL
     Indication: DIFFUSE LARGE B-CELL LYMPHOMA
     Dates: start: 20180613

REACTIONS (14)
  - Cytokine release syndrome [None]
  - Viraemia [None]
  - Blood lactate dehydrogenase increased [None]
  - Candida infection [None]
  - Bacteraemia [None]
  - Lymphadenopathy [None]
  - Mental status changes [None]
  - Pseudomonal bacteraemia [None]
  - Human herpesvirus 6 infection [None]
  - Malignant neoplasm progression [None]
  - Fungaemia [None]
  - Swelling [None]
  - Diffuse large B-cell lymphoma recurrent [None]
  - Pneumonia [None]

NARRATIVE: CASE EVENT DATE: 20180613
